FAERS Safety Report 8790906 (Version 3)
Quarter: 2013Q1

REPORT INFORMATION
  Report Type: Spontaneous
  Country: US (occurrence: None)
  Receive Date: 20120906
  Receipt Date: 20121220
  Transmission Date: 20140127
  Serious: Yes (Hospitalization, Other)
  Sender: FDA-Public Use
  Company Number: JPI-P-024633

PATIENT
  Age: 57 Year
  Sex: Male
  Weight: 63.5 kg

DRUGS (14)
  1. XYREM [Suspect]
     Indication: CATAPLEXY
     Dosage: (2.25 GM, 2 IN 1 D)
     Route: 048
     Dates: start: 20040621, end: 20040720
  2. XYREM [Suspect]
     Indication: PRODUCT USED FOR UNKNOWN INDICATION
     Dosage: (2.25 GM, 2 IN 1 D)
     Route: 048
     Dates: start: 20040621, end: 20040720
  3. AMPHETAMINE/DEXTRAMPHETAMINE [Concomitant]
  4. BACLOFEN [Concomitant]
  5. BUPROPION [Concomitant]
  6. HEPARIN [Concomitant]
  7. LORAZEPAM [Concomitant]
  8. OMEPRAZOLE [Concomitant]
  9. PRAZOSIN [Concomitant]
  10. PREGABALIN [Concomitant]
  11. SENNA [Concomitant]
  12. TRAZODONE [Concomitant]
  13. CELECOXIB [Concomitant]
  14. MORPHINE SULFATE [Suspect]

REACTIONS (4)
  - Road traffic accident [None]
  - Limb injury [None]
  - Leg amputation [None]
  - Infection [None]
